FAERS Safety Report 15714798 (Version 1)
Quarter: 2018Q4

REPORT INFORMATION
  Report Type: Spontaneous
  Country: US (occurrence: US)
  Receive Date: 20181212
  Receipt Date: 20181212
  Transmission Date: 20190205
  Serious: Yes (Hospitalization)
  Sender: FDA-Public Use
  Company Number: None

PATIENT
  Age: 66 Year
  Sex: Male

DRUGS (4)
  1. INTRON A [Concomitant]
     Active Substance: INTERFERON ALFA-2B
  2. GRANIX [Suspect]
     Active Substance: TBO-FILGRASTIM
     Indication: PRODUCT USED FOR UNKNOWN INDICATION
     Dosage: ?          OTHER FREQUENCY:QW IF LOW WBC;?
     Route: 058
     Dates: start: 20171108
  3. BENDEKA [Concomitant]
     Active Substance: BENDAMUSTINE HYDROCHLORIDE
  4. RITUXAN [Concomitant]
     Active Substance: RITUXIMAB

REACTIONS (2)
  - Lymphadenectomy [None]
  - Malignant melanoma [None]

NARRATIVE: CASE EVENT DATE: 20181121
